FAERS Safety Report 22130454 (Version 2)
Quarter: 2023Q2

REPORT INFORMATION
  Report Type: Spontaneous
  Country: CA (occurrence: CA)
  Receive Date: 20230323
  Receipt Date: 20230419
  Transmission Date: 20230721
  Serious: Yes (Hospitalization, Other)
  Sender: FDA-Public Use
  Company Number: CA-PFIZER INC-202300116519

PATIENT
  Age: 80 Year
  Sex: Male

DRUGS (3)
  1. TIKOSYN [Suspect]
     Active Substance: DOFETILIDE
     Dosage: UNK
  2. TIKOSYN [Suspect]
     Active Substance: DOFETILIDE
     Dosage: 125 MG, 2X/DAY
  3. TIKOSYN [Suspect]
     Active Substance: DOFETILIDE
     Dosage: 250 MG, 1X/DAY
     Dates: start: 2023

REACTIONS (4)
  - Cardiac fibrillation [Recovered/Resolved]
  - Loss of consciousness [Recovered/Resolved]
  - Complication associated with device [Recovered/Resolved]
  - Arrhythmia [Recovered/Resolved]
